FAERS Safety Report 5129440-2 (Version None)
Quarter: 2006Q4

REPORT INFORMATION
  Report Type: 
  Country: None (occurrence: None)
  Receive Date: 20061012
  Receipt Date: 20061006
  Transmission Date: 20070319
  Serious: Yes (Death)
  Sender: FDA-Public Use
  Company Number: 163-21880-06100332

PATIENT
  Age: 41 Year
  Sex: Male

DRUGS (3)
  1. REVLIMID [Suspect]
     Indication: ANAEMIA
     Dosage: 25 MG, 1 IN 1 D, ORAL
     Route: 048
  2. REVLIMID [Suspect]
     Indication: CARCINOMA IN SITU
     Dosage: 25 MG, 1 IN 1 D, ORAL
     Route: 048
  3. REVLIMID [Suspect]
     Indication: MULTIPLE MYELOMA
     Dosage: 25 MG, 1 IN 1 D, ORAL
     Route: 048

REACTIONS (1)
  - DEATH [None]
